FAERS Safety Report 9070505 (Version 1)
Quarter: 2013Q1

REPORT INFORMATION
  Report Type: Report from Study
  Country: US (occurrence: US)
  Receive Date: 20130129
  Receipt Date: 20130129
  Transmission Date: 20140127
  Serious: No
  Sender: FDA-Public Use
  Company Number: US-ABBOTT-12P-163-0935008-00

PATIENT
  Age: 52 Year
  Sex: Female

DRUGS (12)
  1. HUMIRA 40 MG/0.8 ML PEN [Suspect]
     Indication: PSORIATIC ARTHROPATHY
     Dates: start: 201105
  2. METHOTREXATE [Suspect]
     Dosage: 8 TABS A WEEK
  3. FOLIC ACID [Suspect]
     Indication: PRODUCT USED FOR UNKNOWN INDICATION
     Dosage: DAILY
  4. TRAMADOL [Suspect]
     Indication: PAIN MANAGEMENT
  5. NORETHINDRONE [Suspect]
     Indication: UTERINE HAEMORRHAGE
  6. STROVITE VITAMIN [Concomitant]
     Indication: PRODUCT USED FOR UNKNOWN INDICATION
     Dosage: ONE A DAY
  7. ULORIC [Concomitant]
     Indication: NEPHROLITHIASIS
     Dosage: 40MG A DAY
  8. TRILIPIX [Concomitant]
     Indication: BLOOD CHOLESTEROL
     Dosage: AT NIGHT
  9. FUROSEMIDE [Concomitant]
     Indication: OEDEMA
  10. VITAMIN D [Concomitant]
     Indication: PRODUCT USED FOR UNKNOWN INDICATION
     Dosage: 50,000UNITS A WEK
  11. DIOVAN [Concomitant]
     Indication: HYPERTENSION
  12. DIOVAN [Concomitant]

REACTIONS (6)
  - Haemorrhoids [Recovering/Resolving]
  - Stomatitis [Recovering/Resolving]
  - Weight increased [Recovering/Resolving]
  - Rash maculo-papular [Recovering/Resolving]
  - Psoriasis [Not Recovered/Not Resolved]
  - Acne [Not Recovered/Not Resolved]
